FAERS Safety Report 20182592 (Version 1)
Quarter: 2021Q4

REPORT INFORMATION
  Report Type: Report from Study
  Country: EG (occurrence: EG)
  Receive Date: 20211214
  Receipt Date: 20211214
  Transmission Date: 20220303
  Serious: Yes (Other)
  Sender: FDA-Public Use
  Company Number: EG-NOVARTISPH-NVSC2021EG282303

PATIENT
  Age: 6 Month
  Sex: Male

DRUGS (5)
  1. OMNITROPE [Suspect]
     Active Substance: SOMATROPIN
     Indication: Growth hormone deficiency
     Dosage: 0.3 MG, QD
     Route: 058
     Dates: start: 201909
  2. OMNITROPE [Suspect]
     Active Substance: SOMATROPIN
     Indication: Body height below normal
     Dosage: 0.2 MG, QD
     Route: 058
  3. OMNITROPE [Suspect]
     Active Substance: SOMATROPIN
     Dosage: 0.5 MG, QD
     Route: 058
  4. LEVOTHYROXINE [Concomitant]
     Active Substance: LEVOTHYROXINE
     Indication: Hypothyroidism
     Dosage: 0.5 MG, QD (ON AN EMPTY STOMACH)
     Route: 048
  5. EUTHYROX [Concomitant]
     Active Substance: LEVOTHYROXINE SODIUM
     Indication: Hypothyroidism
     Dosage: 0.5 MG, QD (ON AN EMPTY STOMACH)
     Route: 048

REACTIONS (10)
  - Hydrocephalus [Recovered/Resolved]
  - Condition aggravated [Recovered/Resolved]
  - Loss of consciousness [Recovered/Resolved]
  - Fall [Recovered/Resolved]
  - Delayed fontanelle closure [Recovered/Resolved]
  - Neonatal disorder [Recovered/Resolved]
  - Intracranial pressure increased [Recovered/Resolved]
  - Product availability issue [Recovered/Resolved]
  - Off label use [Not Recovered/Not Resolved]
  - Expired product administered [Recovered/Resolved]

NARRATIVE: CASE EVENT DATE: 20190901
